FAERS Safety Report 15745189 (Version 1)
Quarter: 2018Q4

REPORT INFORMATION
  Report Type: Spontaneous
  Country: US (occurrence: US)
  Receive Date: 20181220
  Receipt Date: 20181220
  Transmission Date: 20190205
  Serious: No
  Sender: FDA-Public Use
  Company Number: US-ADAMAS PHARMA, LLC-2018ADA02583

PATIENT
  Age: 79 Year
  Sex: Female
  Weight: 45.35 kg

DRUGS (17)
  1. CARBIDOPA / LEVODOPA125 / ENTACAPONE [Concomitant]
     Dosage: UNK, 2X/DAY
  2. MOVE FREE ULTRA [Concomitant]
     Dosage: UNK, 1X/DAY
  3. SOOTHE EYE DROPS [Concomitant]
     Dosage: UNK, 2X/DAY
  4. VITAMIN C GUMMIES [Concomitant]
     Dosage: 2 DOSAGE UNITS, 1X/DAY
  5. SINUS ASSIST [Concomitant]
  6. CINNAMON. [Concomitant]
     Active Substance: CINNAMON
     Dosage: UNK, 2X/DAY
  7. AMLODIPINE [Concomitant]
     Active Substance: AMLODIPINE BESYLATE
     Dosage: 5 MG, 1X/DAY
  8. CARBIDOPA / LEVODOPA150 / ENTACAPONE [Concomitant]
     Dosage: UNK, 5X/DAY
  9. RASAGILINE. [Concomitant]
     Active Substance: RASAGILINE
     Dosage: 1 MG, 1X/DAY AT 6 AM
  10. CENTRUM GUMMIES [Concomitant]
     Dosage: UNK, 1X/DAY
  11. OCUVITE [Concomitant]
     Active Substance: VITAMINS
     Dosage: UNK, 1X/DAY
  12. UNSPECIFIED STOOL SOFTENER [Concomitant]
     Dosage: UNK, 1X/DAY
  13. GOCOVRI [Suspect]
     Active Substance: AMANTADINE
     Indication: DYSKINESIA
     Dosage: 137 MG, 1X/DAY AT BEDTIME
     Route: 048
     Dates: start: 201810
  14. COQ10 [Concomitant]
     Active Substance: UBIDECARENONE
     Dosage: 400 UNK, 3X/DAY
  15. CRANBERRY. [Concomitant]
     Active Substance: CRANBERRY
     Dosage: UNK, 2X/DAY
  16. UNSPECIFIED PROBIOTIC [Concomitant]
  17. NEUPRO [Concomitant]
     Active Substance: ROTIGOTINE
     Dosage: 1X EVERY 24 HOURS
     Route: 062

REACTIONS (4)
  - Agitation [Recovering/Resolving]
  - Muscle rigidity [Recovered/Resolved]
  - Hyperhidrosis [Recovered/Resolved]
  - Feeling abnormal [Recovering/Resolving]

NARRATIVE: CASE EVENT DATE: 201810
